FAERS Safety Report 9388400 (Version 3)
Quarter: 2014Q2

REPORT INFORMATION
  Report Type: Spontaneous
  Country: US (occurrence: US)
  Receive Date: 20130708
  Receipt Date: 20140403
  Transmission Date: 20141212
  Serious: Yes (Death, Hospitalization)
  Sender: FDA-Public Use
  Company Number: US-GLAXOSMITHKLINE-A1030757A

PATIENT
  Age: 65 Year
  Sex: Male

DRUGS (1)
  1. AVANDIA [Suspect]
     Indication: DIABETES MELLITUS
     Dosage: 8MG PER DAY
     Route: 048
     Dates: start: 20020722, end: 20070717

REACTIONS (4)
  - Pancreatic carcinoma metastatic [Fatal]
  - Cardiac failure congestive [Unknown]
  - Myocardial infarction [Unknown]
  - Pleural effusion [Unknown]
